FAERS Safety Report 5940309-3 (Version None)
Quarter: 2008Q4

REPORT INFORMATION
  Report Type: 
  Country: None (occurrence: None)
  Receive Date: 20081104
  Receipt Date: 20081030
  Transmission Date: 20090506
  Serious: Yes (Other)
  Sender: FDA-Public Use
  Company Number: A0754642A

PATIENT
  Sex: Female

DRUGS (1)
  1. WELLBUTRIN SR [Suspect]
     Dosage: 150MG TWICE PER DAY
     Route: 048
     Dates: start: 20081015

REACTIONS (1)
  - COPROLALIA [None]
